FAERS Safety Report 5355071-5 (Version None)
Quarter: 2007Q2

REPORT INFORMATION
  Report Type: 
  Country: None (occurrence: None)
  Receive Date: 20070613
  Receipt Date: 20070531
  Transmission Date: 20071010
  Serious: Yes (Other)
  Sender: FDA-Public Use
  Company Number: PHBS2007ES08921

PATIENT
  Sex: Male

DRUGS (1)
  1. SANDIMMUNE [Suspect]
     Indication: AUTOIMMUNE HEPATITIS
     Route: 065

REACTIONS (2)
  - ANAPHYLACTIC REACTION [None]
  - RASH [None]
